FAERS Safety Report 9740186 (Version 2)
Quarter: 2014Q2

REPORT INFORMATION
  Report Type: Report from Study
  Country: BE (occurrence: BE)
  Receive Date: 20131209
  Receipt Date: 20140522
  Transmission Date: 20141212
  Serious: Yes (Other)
  Sender: FDA-Public Use
  Company Number: BE-ABBVIE-13P-013-1176409-00

PATIENT
  Age: 43 Year
  Sex: Male
  Weight: 90 kg

DRUGS (3)
  1. HUMIRA [Suspect]
     Indication: ANKYLOSING SPONDYLITIS
     Route: 058
     Dates: start: 20100707, end: 201306
  2. HUMIRA [Suspect]
     Dates: start: 201308
  3. CELECOXIB [Concomitant]
     Indication: ANKYLOSING SPONDYLITIS
     Dosage: IF NEEDED
     Dates: start: 20130405

REACTIONS (2)
  - Lymphadenopathy [Recovered/Resolved]
  - Pharyngitis [Recovered/Resolved]
